FAERS Safety Report 8918950 (Version 1)
Quarter: 2012Q4

REPORT INFORMATION
  Report Type: 
  Country: DE (occurrence: GB)
  Receive Date: 20121121
  Receipt Date: 20121121
  Transmission Date: 20130627
  Serious: Yes (Other)
  Sender: FDA-Public Use
  Company Number: 2012SP003168

PATIENT
  Age: 48 Year
  Sex: Female
  Weight: 46 kg

DRUGS (4)
  1. ALVESCO [Suspect]
     Indication: ASTHMA
     Route: 055
     Dates: start: 20111212, end: 20120201
  2. ALVESCO [Suspect]
     Indication: BRONCHITIS CHRONIC
     Route: 055
     Dates: start: 20111212, end: 20120201
  3. SALBUTAMOL [Concomitant]
     Indication: PRODUCT USED FOR UNKNOWN INDICATION
  4. FLUTICASONE [Concomitant]
     Indication: ASTHMA

REACTIONS (4)
  - Lower respiratory tract infection [Recovered/Resolved]
  - Oropharyngeal pain [Recovered/Resolved]
  - Drug ineffective [None]
  - Product substitution issue [None]
